FAERS Safety Report 6815369-8 (Version None)
Quarter: 2010Q2

REPORT INFORMATION
  Report Type: 
  Country: None (occurrence: None)
  Receive Date: 20100629
  Receipt Date: 20100623
  Transmission Date: 20101027
  Serious: Yes (Other)
  Sender: FDA-Public Use
  Company Number: 2010SP035797

PATIENT
  Age: 29 Year
  Sex: Female

DRUGS (1)
  1. TEMODAL [Suspect]
     Indication: GLIOBLASTOMA
     Dosage: PO
     Route: 048

REACTIONS (4)
  - ANGIOSARCOMA [None]
  - HERPES ZOSTER [None]
  - PLEURAL EFFUSION [None]
  - PLEURAL FIBROSIS [None]
